FAERS Safety Report 15546243 (Version 1)
Quarter: 2018Q4

REPORT INFORMATION
  Report Type: Spontaneous
  Country: US (occurrence: US)
  Receive Date: 20181023
  Receipt Date: 20181023
  Transmission Date: 20190205
  Serious: Yes (Other)
  Sender: FDA-Public Use
  Company Number: None

PATIENT
  Age: 55 Year
  Sex: Female
  Weight: 69.75 kg

DRUGS (1)
  1. PHENYTOIN. [Suspect]
     Active Substance: PHENYTOIN
     Indication: SEIZURE
     Route: 048

REACTIONS (5)
  - Seizure [None]
  - Therapy change [None]
  - Product substitution issue [None]
  - Therapeutic response decreased [None]
  - Drug effect decreased [None]

NARRATIVE: CASE EVENT DATE: 20180921
